FAERS Safety Report 8812932 (Version 1)
Quarter: 2012Q4

REPORT INFORMATION
  Report Type: 
  Country: US (occurrence: US)
  Receive Date: 20120927
  Receipt Date: 20120927
  Transmission Date: 20130627
  Serious: Yes (Hospitalization)
  Sender: FDA-Public Use
  Company Number: US-ROCHE-1130567

PATIENT
  Sex: Male

DRUGS (2)
  1. RITUXAN [Suspect]
     Indication: DIFFUSE LARGE B-CELL LYMPHOMA
     Route: 042
  2. NEULASTA [Concomitant]
     Indication: NEUTROPENIA

REACTIONS (9)
  - Pain [Not Recovered/Not Resolved]
  - Dyspnoea [Unknown]
  - Neutropenia [Unknown]
  - Pyrexia [Unknown]
  - Fatigue [Unknown]
  - Night sweats [Unknown]
  - White blood cell count decreased [Unknown]
  - Oxygen saturation abnormal [Unknown]
  - Interstitial lung disease [Recovering/Resolving]
